FAERS Safety Report 5168213-1 (Version None)
Quarter: 2006Q4

REPORT INFORMATION
  Report Type: 
  Country: None (occurrence: None)
  Receive Date: 20061208
  Receipt Date: 20061205
  Transmission Date: 20070319
  Serious: Yes (Death)
  Sender: FDA-Public Use
  Company Number: US-GLAXOSMITHKLINE-A0630435A

PATIENT
  Age: 47 Year
  Sex: Female

DRUGS (3)
  1. PAXIL [Suspect]
     Indication: DEPRESSION
  2. SYNTHROID [Concomitant]
  3. VITAMIN [Concomitant]

REACTIONS (2)
  - ABNORMAL BEHAVIOUR [None]
  - COMPLETED SUICIDE [None]
